FAERS Safety Report 5705561-8 (Version None)
Quarter: 2008Q2

REPORT INFORMATION
  Report Type: 
  Country: None (occurrence: None)
  Receive Date: 20080411
  Receipt Date: 20080402
  Transmission Date: 20081010
  Serious: Yes (Hospitalization)
  Sender: FDA-Public Use
  Company Number: 2008JP001486

PATIENT
  Age: 22 Year
  Sex: Female
  Weight: 45.5 kg

DRUGS (10)
  1. PROGRAF [Suspect]
     Indication: LUPUS NEPHRITIS
     Dosage: 3 MG, UID/QD, ORAL
     Route: 048
     Dates: start: 20080304, end: 20080309
  2. PREDNISOLONE [Concomitant]
  3. TAKEPRON (LANSOPRAZOLE) ORODISPERSIBLE CR TABLET [Concomitant]
  4. BAYASPIRIN PER ORAL NOS [Concomitant]
  5. ONEALFA (ALFACALCIDOL) TABLET [Concomitant]
  6. BONALON (ALENDRONIC ACID) TABLET [Concomitant]
  7. LOXOPROFEN (LOXOPROFEN) TABLET [Concomitant]
  8. LENDORMIN (BROTIZOLAM) TABLET [Concomitant]
  9. ADALAT L TABLET [Concomitant]
  10. SULFAMETHOXAZOLE AND TRIMETHOPRIM [Concomitant]

REACTIONS (3)
  - CONVULSION [None]
  - DEPRESSED LEVEL OF CONSCIOUSNESS [None]
  - NEUROPSYCHIATRIC LUPUS [None]
